FAERS Safety Report 4706338-2 (Version None)
Quarter: 2005Q3

REPORT INFORMATION
  Report Type: 
  Country: None (occurrence: None)
  Receive Date: 20050705
  Receipt Date: 20050623
  Transmission Date: 20060218
  Serious: Yes (Hospitalization)
  Sender: FDA-Public Use
  Company Number: ES-BRISTOL-MYERS SQUIBB COMPANY-13014451

PATIENT
  Age: 64 Year
  Sex: Female
  Weight: 68 kg

DRUGS (3)
  1. LIPLAT TABS 20 MG [Suspect]
     Indication: LIPID METABOLISM DISORDER
     Route: 048
     Dates: start: 20020403, end: 20050412
  2. SUCRALFATE [Interacting]
     Indication: OESOPHAGITIS
     Dates: start: 19950101
  3. FAMOTIDINE [Interacting]
     Indication: OESOPHAGITIS
     Dates: start: 19950101

REACTIONS (6)
  - COUGH [None]
  - DRUG INTERACTION [None]
  - PLEURAL EFFUSION [None]
  - PNEUMONIA [None]
  - PRODUCTIVE COUGH [None]
  - PULMONARY EOSINOPHILIA [None]
